FAERS Safety Report 9386563 (Version 1)
Quarter: 2013Q3

REPORT INFORMATION
  Report Type: Spontaneous
  Country: US (occurrence: US)
  Receive Date: 20130708
  Receipt Date: 20130708
  Transmission Date: 20140515
  Serious: No
  Sender: FDA-Public Use
  Company Number: US-BIOGENIDEC-2013BI060135

PATIENT
  Age: 50 Year
  Sex: Female

DRUGS (2)
  1. TYSABRI [Suspect]
     Indication: MULTIPLE SCLEROSIS
     Route: 042
     Dates: start: 20130607
  2. CYMBALTA [Concomitant]
     Indication: DEPRESSION
     Route: 048

REACTIONS (7)
  - Depression [Recovered/Resolved]
  - Sleep disorder [Recovered/Resolved]
  - Hemiparesis [Recovered/Resolved]
  - Fall [Recovered/Resolved]
  - Pain [Not Recovered/Not Resolved]
  - Contusion [Not Recovered/Not Resolved]
  - Dizziness [Recovered/Resolved]
